FAERS Safety Report 4946315-X (Version None)
Quarter: 2006Q1

REPORT INFORMATION
  Report Type: 
  Country: None (occurrence: None)
  Receive Date: 20060316
  Receipt Date: 20060316
  Transmission Date: 20060701
  Serious: Yes (Hospitalization)
  Sender: FDA-Public Use
  Company Number: None

PATIENT
  Sex: Female
  Weight: 68 kg

DRUGS (1)
  1. FENTANYL [Suspect]
     Indication: PERIOPERATIVE ANALGESIA
     Dosage: 100MCG/HR  CONTINUOUS   TOP
     Route: 061

REACTIONS (2)
  - LOSS OF CONSCIOUSNESS [None]
  - RESPIRATORY DISORDER [None]
